FAERS Safety Report 5357997-5 (Version None)
Quarter: 2007Q2

REPORT INFORMATION
  Report Type: 
  Country: None (occurrence: None)
  Receive Date: 20070530
  Receipt Date: 20061213
  Transmission Date: 20071010
  Serious: Yes (Hospitalization)
  Sender: FDA-Public Use
  Company Number: US200612002117

PATIENT
  Age: 20 Year
  Sex: Female

DRUGS (2)
  1. ZYPREXA [Suspect]
     Indication: BIPOLAR I DISORDER
     Dosage: 7.5 MG
     Dates: start: 20061101, end: 20061201
  2. LITHIUM CARBONATE [Concomitant]

REACTIONS (2)
  - DRUG INEFFECTIVE [None]
  - MANIA [None]
